FAERS Safety Report 20786228 (Version 1)
Quarter: 2022Q2

REPORT INFORMATION
  Report Type: Spontaneous
  Country: US (occurrence: None)
  Receive Date: 20220504
  Receipt Date: 20220504
  Transmission Date: 20220721
  Serious: No
  Sender: FDA-Public Use
  Company Number: US-ROCHE-2971637

PATIENT
  Sex: Female

DRUGS (1)
  1. OCREVUS [Suspect]
     Active Substance: OCRELIZUMAB
     Indication: Pulmonary arterial hypertension
     Dosage: 300 MG/ 10 ML
     Route: 042
     Dates: start: 20210427

REACTIONS (5)
  - Gait disturbance [Unknown]
  - Balance disorder [Unknown]
  - Swelling of eyelid [Unknown]
  - Back pain [Unknown]
  - Off label use [Unknown]
